FAERS Safety Report 5273286-1 (Version None)
Quarter: 2007Q1

REPORT INFORMATION
  Report Type: 
  Country: None (occurrence: None)
  Receive Date: 20070319
  Receipt Date: 20070306
  Transmission Date: 20070707
  Serious: Yes (Other)
  Sender: FDA-Public Use
  Company Number: 2006-01495

PATIENT
  Sex: Male

DRUGS (1)
  1. VELCADE [Suspect]

REACTIONS (2)
  - MYOCLONUS [None]
  - THROMBOCYTOPENIA [None]
